FAERS Safety Report 11490394 (Version 2)
Quarter: 2015Q4

REPORT INFORMATION
  Report Type: Spontaneous
  Country: IT (occurrence: IT)
  Receive Date: 20150910
  Receipt Date: 20151207
  Transmission Date: 20160304
  Serious: Yes (Hospitalization)
  Sender: FDA-Public Use
  Company Number: IT-PFIZER INC-2015301320

PATIENT
  Age: 42 Year
  Sex: Female

DRUGS (2)
  1. XANAX [Suspect]
     Active Substance: ALPRAZOLAM
     Indication: CRYING
     Dosage: UNK
     Route: 048
     Dates: start: 2015, end: 2015
  2. XANAX [Suspect]
     Active Substance: ALPRAZOLAM
     Dosage: 20 ML, SINGLE
     Route: 048
     Dates: start: 20150822, end: 20150822

REACTIONS (9)
  - Sopor [Recovered/Resolved]
  - Dysarthria [Unknown]
  - Epistaxis [Unknown]
  - Intentional overdose [Unknown]
  - Intentional self-injury [Unknown]
  - Somnolence [Unknown]
  - Drug abuse [Recovered/Resolved]
  - Face injury [Recovered/Resolved]
  - Fall [Unknown]

NARRATIVE: CASE EVENT DATE: 20150822
